FAERS Safety Report 9340391 (Version 4)
Quarter: 2014Q2

REPORT INFORMATION
  Report Type: Report from Study
  Country: DE (occurrence: DE)
  Receive Date: 20130610
  Receipt Date: 20140522
  Transmission Date: 20141212
  Serious: Yes (Other)
  Sender: FDA-Public Use
  Company Number: PHHY2013DE051448

PATIENT
  Sex: Male

DRUGS (3)
  1. FTY 720 [Suspect]
     Indication: MULTIPLE SCLEROSIS
     Dosage: 0.5 MG, QD
     Route: 048
     Dates: start: 20121003, end: 20130515
  2. L-THYROXINE [Concomitant]
     Dates: start: 20020801
  3. VESIKUR [Concomitant]
     Dates: start: 20070501

REACTIONS (3)
  - Pyrexia [Recovered/Resolved]
  - Lymphocyte count decreased [Recovered/Resolved]
  - Hepatic enzyme increased [Recovered/Resolved]
